FAERS Safety Report 18011737 (Version 2)
Quarter: 2025Q2

REPORT INFORMATION
  Report Type: Spontaneous
  Country: PL (occurrence: PL)
  Receive Date: 20200713
  Receipt Date: 20250621
  Transmission Date: 20250717
  Serious: Yes (Hospitalization, Other)
  Sender: AUROBINDO
  Company Number: PL-KRKA-PL2020K10123LIT

PATIENT
  Age: 60 Year
  Sex: Male

DRUGS (2)
  1. ACYCLOVIR [Suspect]
     Active Substance: ACYCLOVIR
     Indication: Antiviral treatment
     Route: 065
  2. DEXAMETHASONE [Suspect]
     Active Substance: DEXAMETHASONE
     Indication: Inflammation
     Route: 065

REACTIONS (8)
  - Acute respiratory failure [Unknown]
  - Guillain-Barre syndrome [Unknown]
  - Condition aggravated [Unknown]
  - Dyspnoea [Unknown]
  - General physical health deterioration [Unknown]
  - Dysphagia [Unknown]
  - Epilepsy [Unknown]
  - Drug ineffective [Unknown]
